FAERS Safety Report 24553188 (Version 1)
Quarter: 2024Q4

REPORT INFORMATION
  Report Type: Spontaneous
  Country: BE (occurrence: BE)
  Receive Date: 20241028
  Receipt Date: 20241028
  Transmission Date: 20250114
  Serious: Yes (Other)
  Sender: ACCORD
  Company Number: BE-MLMSERVICE-20241010-PI223984-00295-1

PATIENT
  Sex: Female

DRUGS (1)
  1. SERTRALINE [Suspect]
     Active Substance: SERTRALINE HYDROCHLORIDE
     Indication: Product used for unknown indication

REACTIONS (3)
  - Myopathy [Recovering/Resolving]
  - Sensory disturbance [Recovering/Resolving]
  - Multiple acyl-coenzyme A dehydrogenase deficiency [Recovering/Resolving]
